FAERS Safety Report 7740214-6 (Version None)
Quarter: 2011Q3

REPORT INFORMATION
  Report Type: 
  Country: None (occurrence: None)
  Receive Date: 20110909
  Receipt Date: 20110909
  Transmission Date: 20111222
  Serious: Yes (Hospitalization)
  Sender: FDA-Public Use
  Company Number: None

PATIENT
  Age: 49 Year
  Sex: Female
  Weight: 92.532 kg

DRUGS (1)
  1. NITROFURANTOIN MONOHYDRATE/MACROCRYSTALS [Suspect]
     Indication: CYSTITIS
     Dosage: TAKE 1 CAPSULE
     Route: 048
     Dates: start: 20110907, end: 20110907

REACTIONS (18)
  - OEDEMA PERIPHERAL [None]
  - CHILLS [None]
  - PARAESTHESIA [None]
  - NAUSEA [None]
  - HEADACHE [None]
  - PRURITUS [None]
  - COGNITIVE DISORDER [None]
  - MALAISE [None]
  - ASTHENIA [None]
  - THINKING ABNORMAL [None]
  - NO REACTION ON PREVIOUS EXPOSURE TO DRUG [None]
  - CHEST PAIN [None]
  - NAIL DISCOLOURATION [None]
  - DYSPNOEA [None]
  - URTICARIA [None]
  - BLOOD PRESSURE INCREASED [None]
  - DIZZINESS [None]
  - HYPERHIDROSIS [None]
